FAERS Safety Report 4417654-6 (Version None)
Quarter: 2004Q2

REPORT INFORMATION
  Report Type: 
  Country: None (occurrence: None)
  Receive Date: 20040625
  Receipt Date: 20040517
  Transmission Date: 20050107
  Serious: Yes (Hospitalization, Other)
  Sender: FDA-Public Use
  Company Number: 206401

PATIENT
  Age: 66 Year
  Sex: Male
  Weight: 89.3 kg

DRUGS (2)
  1. AVASTIN [Suspect]
     Indication: COLON CANCER
     Dosage: 430 MG, Q2W, INTRAVENOUS
     Route: 042
     Dates: start: 20040419, end: 20040503
  2. FLUOROURACIL [Concomitant]

REACTIONS (1)
  - GASTROINTESTINAL PERFORATION [None]
